FAERS Safety Report 4426595-X (Version None)
Quarter: 2004Q3

REPORT INFORMATION
  Report Type: 
  Country: None (occurrence: None)
  Receive Date: 20040811
  Receipt Date: 20040806
  Transmission Date: 20050211
  Serious: Yes (Hospitalization)
  Sender: FDA-Public Use
  Company Number: 200410346BYL

PATIENT
  Age: 81 Year
  Sex: Female
  Weight: 26 kg

DRUGS (6)
  1. ADALAT [Suspect]
     Indication: HYPERTENSION
     Dosage: 40 MG , QD, ORAL
     Route: 048
     Dates: end: 20040611
  2. BLOPRESS (CANDESARTAN CILEXETIL) [Suspect]
     Indication: HYPERTENSION
     Dosage: 4 MG , QD, ORAL
     Route: 048
     Dates: end: 20040611
  3. MOBIC [Suspect]
     Indication: BACK PAIN
     Dosage: 10 MG , QD, ORAL
     Route: 048
     Dates: end: 20040611
  4. CEROCRAL (IFENPRODIL TARTRATE)` [Suspect]
     Indication: CEREBRAL INFARCTION
     Dosage: 10 MG , TID, ORAL
     Route: 048
     Dates: end: 20040611
  5. MYONAL (EPERISONE HYDROCHLORIDE) [Suspect]
     Indication: BACK PAIN
     Dosage: 50 MG , TID, ORAL
     Route: 048
     Dates: end: 20040611
  6. MERISLON (BETAHISTINE HYDROCHLORIDE) [Suspect]
     Indication: CEREBRAL INFARCTION
     Dosage: 6 MG, TID, ORAL
     Route: 048
     Dates: end: 20040611

REACTIONS (6)
  - ALANINE AMINOTRANSFERASE INCREASED [None]
  - ASPARTATE AMINOTRANSFERASE INCREASED [None]
  - BLOOD ALKALINE PHOSPHATASE INCREASED [None]
  - GAMMA-GLUTAMYLTRANSFERASE INCREASED [None]
  - HEPATIC FUNCTION ABNORMAL [None]
  - LIVER DISORDER [None]
